FAERS Safety Report 5371272-4 (Version None)
Quarter: 2007Q2

REPORT INFORMATION
  Report Type: 
  Country: None (occurrence: None)
  Receive Date: 20070615
  Receipt Date: 20070301
  Transmission Date: 20071010
  Serious: Yes (Other)
  Sender: FDA-Public Use
  Company Number: 200619065US

PATIENT
  Age: 54 Year
  Sex: Male
  Weight: 108.87 kg

DRUGS (18)
  1. LANTUS [Suspect]
     Indication: DIABETES MELLITUS NON-INSULIN-DEPENDENT
     Dosage: 33 VIA CARTRIDGE U QD
     Dates: start: 20060701
  2. LANTUS [Suspect]
     Indication: DIABETES MELLITUS NON-INSULIN-DEPENDENT
     Dosage: 32 VIA CARTRIDGE U
     Dates: start: 20061001
  3. LANTUS [Suspect]
     Indication: DIABETES MELLITUS NON-INSULIN-DEPENDENT
  4. OPTICLIK [Suspect]
     Indication: DIABETES MELLITUS NON-INSULIN-DEPENDENT
     Dates: start: 20060701
  5. PIOGLITAZONE [Concomitant]
  6. FENTANYL [Concomitant]
  7. OXYCODONE HCL [Concomitant]
  8. SYNTHROID [Concomitant]
  9. ATORVASTATIN CALCIUM (LIPITOR) [Concomitant]
  10. LISINOPRIL [Concomitant]
  11. TRAZODONE HYDROCHLORIDE (DESYREL) [Concomitant]
  12. DIAZEPAM [Concomitant]
  13. ESCITALOPRAM OXALATE (LEXAPRO) [Concomitant]
  14. ADENOSINE (TRICOR [Concomitant]
  15. CELEBREX [Concomitant]
  16. LYRICA [Concomitant]
  17. RANITIDINE HYDROCHLORIDE (ZANTAC) [Concomitant]
  18. PREVACID [Concomitant]

REACTIONS (3)
  - BLOOD GLUCOSE INCREASED [None]
  - DRUG INEFFECTIVE [None]
  - HYPERGLYCAEMIA [None]
